FAERS Safety Report 4934995-4 (Version None)
Quarter: 2006Q1

REPORT INFORMATION
  Report Type: 
  Country: None (occurrence: None)
  Receive Date: 20060127
  Receipt Date: 20051219
  Transmission Date: 20060701
  Serious: Yes (Other)
  Sender: FDA-Public Use
  Company Number: 2005172791

PATIENT
  Age: 72 Year
  Sex: Female

DRUGS (8)
  1. LYRICA [Suspect]
     Indication: NEURALGIA
     Dosage: 200 MG (100 MG, 2 IN 1 D)
     Dates: start: 20050101
  2. NORVASC [Concomitant]
  3. LIPOTOR (ATORVASTATIN) [Concomitant]
  4. DURAGESIC-100 [Concomitant]
  5. PROPOXYPHENE (DETROPROPOXYPHENE) [Concomitant]
  6. SYNTHROID [Concomitant]
  7. CALCIUM (CALCIUM) [Concomitant]
  8. FUROSEMIDE [Concomitant]

REACTIONS (1)
  - TREMOR [None]
